FAERS Safety Report 21923609 (Version 7)
Quarter: 2023Q2

REPORT INFORMATION
  Report Type: Spontaneous
  Country: CA (occurrence: CA)
  Receive Date: 20230130
  Receipt Date: 20230628
  Transmission Date: 20230722
  Serious: Yes (Life-Threatening, Hospitalization, Other)
  Sender: FDA-Public Use
  Company Number: CA-CELLTRION INC.-2022CA021415

PATIENT

DRUGS (4)
  1. INFLECTRA [Suspect]
     Active Substance: INFLIXIMAB-DYYB
     Indication: Crohn^s disease
     Dosage: 10 MG/KG, WEEK 6 THEN EVERY 4 WEEKS (WEEK 0 AND 2 AT THE HOSPITAL)
     Route: 042
     Dates: start: 20221208
  2. INFLECTRA [Suspect]
     Active Substance: INFLIXIMAB-DYYB
     Dosage: 600 MG (10 MG/KG), WEEK 6 THEN EVERY 4 WEEKS
     Route: 042
     Dates: start: 20230120
  3. INFLECTRA [Suspect]
     Active Substance: INFLIXIMAB-DYYB
     Dosage: 10 MG/KG, WEEK 6 THEN EVERY 4 WEEKS
     Route: 042
     Dates: start: 20230417
  4. INFLECTRA [Suspect]
     Active Substance: INFLIXIMAB-DYYB
     Dosage: 10 MG/KG, WEEK 6 THEN EVERY 4 WEEKS
     Route: 042
     Dates: start: 20230515

REACTIONS (12)
  - Abscess limb [Not Recovered/Not Resolved]
  - Myositis [Not Recovered/Not Resolved]
  - Fasciitis [Not Recovered/Not Resolved]
  - Septic shock [Not Recovered/Not Resolved]
  - Infection [Not Recovered/Not Resolved]
  - Weight increased [Not Recovered/Not Resolved]
  - Drug level above therapeutic [Not Recovered/Not Resolved]
  - Joint effusion [Not Recovered/Not Resolved]
  - Off label use [Unknown]
  - Off label use [Unknown]
  - Off label use [Unknown]
  - Intentional product use issue [Unknown]

NARRATIVE: CASE EVENT DATE: 20221208
